FAERS Safety Report 15745626 (Version 1)
Quarter: 2018Q4

REPORT INFORMATION
  Report Type: Spontaneous
  Country: US (occurrence: US)
  Receive Date: 20181220
  Receipt Date: 20181220
  Transmission Date: 20190205
  Serious: No
  Sender: FDA-Public Use
  Company Number: US-ASTRAZENECA-2018SF63060

PATIENT
  Age: 908 Month
  Sex: Female
  Weight: 62.6 kg

DRUGS (1)
  1. FARXIGA [Suspect]
     Active Substance: DAPAGLIFLOZIN PROPANEDIOL
     Indication: TYPE 2 DIABETES MELLITUS
     Route: 048
     Dates: start: 20180815

REACTIONS (1)
  - Vulvovaginal pruritus [Not Recovered/Not Resolved]

NARRATIVE: CASE EVENT DATE: 201808
